FAERS Safety Report 11537543 (Version 2)
Quarter: 2015Q3

REPORT INFORMATION
  Report Type: Spontaneous
  Country: US (occurrence: US)
  Receive Date: 20150922
  Receipt Date: 20150923
  Transmission Date: 20151125
  Serious: Yes (Other)
  Sender: FDA-Public Use
  Company Number: US-BAYER-2015-422306

PATIENT

DRUGS (5)
  1. ALEVE [Suspect]
     Active Substance: NAPROXEN SODIUM
  2. NAPROXEN. [Concomitant]
     Active Substance: NAPROXEN
  3. MOTRIN [Concomitant]
     Active Substance: IBUPROFEN
  4. IBUPROFEN. [Concomitant]
     Active Substance: IBUPROFEN
  5. BAYER GENUINE ASPIRIN [Suspect]
     Active Substance: ASPIRIN

REACTIONS (2)
  - Ulcer [None]
  - Renal impairment [None]
